FAERS Safety Report 9703892 (Version 1)
Quarter: 2013Q4

REPORT INFORMATION
  Report Type: Report from Study
  Country: IN (occurrence: IN)
  Receive Date: 20131122
  Receipt Date: 20131122
  Transmission Date: 20140711
  Serious: Yes (Other)
  Sender: FDA-Public Use
  Company Number: IN-ROCHE-1306596

PATIENT
  Sex: 0

DRUGS (2)
  1. PEG-INTERFERON ALFA 2A [Suspect]
     Indication: HEPATITIS C
     Route: 065
  2. RIBAVIRIN [Suspect]
     Indication: HEPATITIS C
     Route: 065

REACTIONS (8)
  - Pancytopenia [Unknown]
  - Leukopenia [Unknown]
  - Hepatic function abnormal [Unknown]
  - Pain [Unknown]
  - Hypothyroidism [Unknown]
  - Anaemia [Unknown]
  - Mental disorder [Unknown]
  - Depression [Unknown]
